FAERS Safety Report 4978989-1 (Version None)
Quarter: 2006Q2

REPORT INFORMATION
  Report Type: 
  Country: None (occurrence: None)
  Receive Date: 20060419
  Receipt Date: 20060419
  Transmission Date: 20061013
  Serious: Yes (Hospitalization)
  Sender: FDA-Public Use
  Company Number: None

PATIENT
  Age: 74 Year
  Sex: Male
  Weight: 106 kg

DRUGS (9)
  1. WARFARIN SODIUM [Suspect]
     Indication: ATRIAL FIBRILLATION
     Dosage: 5MG/2.5MG    MWF/STTS    PO
     Route: 048
     Dates: start: 20041123, end: 20060418
  2. BACLOFEN [Concomitant]
  3. CALCIUM CARBONATE [Concomitant]
  4. DILTIAZEM [Concomitant]
  5. DOCUSATE [Concomitant]
  6. FUROSEMIDE [Concomitant]
  7. TERAZOSIN HCL [Concomitant]
  8. ALBUTEROL SULFATE AUTOHALER [Concomitant]
  9. TRIAMCINOLONE [Concomitant]

REACTIONS (1)
  - DEEP VEIN THROMBOSIS [None]
